FAERS Safety Report 4862392-9 (Version None)
Quarter: 2005Q4

REPORT INFORMATION
  Report Type: 
  Country: None (occurrence: None)
  Receive Date: 20051128
  Receipt Date: 20051024
  Transmission Date: 20060501
  Serious: No
  Sender: FDA-Public Use
  Company Number: 218865

PATIENT
  Age: 35 Year
  Sex: Female

DRUGS (5)
  1. RAPTIVA [Suspect]
     Indication: PSORIASIS
     Dosage: 125 MG, 1/WEEK, SUBCUTANEOUS
     Route: 058
     Dates: start: 20040522, end: 20060501
  2. METHOTREXATE [Concomitant]
  3. UVB (PHOTOTHERAPY UVB) [Concomitant]
  4. TOPICAL STEROID (TOPICAL STEROID NOS) [Concomitant]
  5. STEROID (STEROID NOS) [Concomitant]

REACTIONS (1)
  - POLYCHONDRITIS [None]
